FAERS Safety Report 12700922 (Version 1)
Quarter: 2016Q3

REPORT INFORMATION
  Report Type: Spontaneous
  Country: US (occurrence: None)
  Receive Date: 20160830
  Receipt Date: 20160830
  Transmission Date: 20161109
  Serious: No
  Sender: FDA-Public Use
  Company Number: None

PATIENT

DRUGS (1)
  1. ALKA SELTZER GUMMIES [Suspect]
     Active Substance: CALCIUM
     Route: 048

REACTIONS (1)
  - Product name confusion [None]

NARRATIVE: CASE EVENT DATE: 20160818
